FAERS Safety Report 18558999 (Version 2)
Quarter: 2020Q4

REPORT INFORMATION
  Report Type: Spontaneous
  Country: HR (occurrence: HR)
  Receive Date: 20201130
  Receipt Date: 20201202
  Transmission Date: 20210114
  Serious: Yes (Other)
  Sender: FDA-Public Use
  Company Number: HR-PFIZER INC-2020463355

PATIENT
  Age: 26 Year
  Sex: Male

DRUGS (5)
  1. CYTARABINE. [Suspect]
     Active Substance: CYTARABINE
     Dosage: 2X1 G/M2 D1-5
  2. MITOXANTRON [MITOXANTRONE] [Suspect]
     Active Substance: MITOXANTRONE HYDROCHLORIDE
     Dosage: 12 MG/M2 D1-3
  3. GEMTUZUMAB OZOGAMICIN [Suspect]
     Active Substance: GEMTUZUMAB OZOGAMICIN
     Dosage: 3 MG/M2 D1, D4, D7
  4. GEMTUZUMAB OZOGAMICIN [Suspect]
     Active Substance: GEMTUZUMAB OZOGAMICIN
     Dosage: 3 MG/M2 D1
  5. CYTARABINE. [Suspect]
     Active Substance: CYTARABINE
     Dosage: 2X1.5 G/M2 D1-3

REACTIONS (2)
  - Graft versus host disease [Unknown]
  - Neoplasm recurrence [Recovered/Resolved]
